FAERS Safety Report 10248884 (Version 1)
Quarter: 2014Q2

REPORT INFORMATION
  Report Type: Spontaneous
  Country: US (occurrence: US)
  Receive Date: 20140620
  Receipt Date: 20140620
  Transmission Date: 20141212
  Serious: Yes (Congenital Anomaly, Other)
  Sender: FDA-Public Use
  Company Number: US-JNJFOC-20140611673

PATIENT
  Sex: Male

DRUGS (3)
  1. TOPAMAX [Suspect]
     Indication: CONVULSION
     Dosage: MOTHER^S DOSING
     Route: 064
  2. DILANTIN [Suspect]
     Indication: CONVULSION
     Dosage: MOTHER^S DOSING
     Route: 064
  3. LAMICTAL [Suspect]
     Indication: CONVULSION
     Dosage: MOTHER^S DOSING
     Route: 064

REACTIONS (4)
  - Foetal exposure during pregnancy [Recovered/Resolved]
  - Meningocele [Recovering/Resolving]
  - Spina bifida [Recovering/Resolving]
  - Tethered cord syndrome [Recovering/Resolving]
